FAERS Safety Report 6850576-X (Version None)
Quarter: 2010Q3

REPORT INFORMATION
  Report Type: 
  Country: None (occurrence: None)
  Receive Date: 20100716
  Receipt Date: 20071018
  Transmission Date: 20110219
  Serious: No
  Sender: FDA-Public Use
  Company Number: US-PFIZER INC-2007088794

PATIENT
  Sex: Female
  Weight: 72.7 kg

DRUGS (2)
  1. CHANTIX [Suspect]
     Indication: SMOKING CESSATION THERAPY
     Dates: start: 20071015
  2. CELEXA [Interacting]
     Indication: DEPRESSION

REACTIONS (4)
  - DRUG INTERACTION [None]
  - HEADACHE [None]
  - MUSCLE TWITCHING [None]
  - PAROSMIA [None]
